FAERS Safety Report 24143837 (Version 1)
Quarter: 2024Q3

REPORT INFORMATION
  Report Type: Report from Study
  Country: US (occurrence: US)
  Receive Date: 20240727
  Receipt Date: 20240727
  Transmission Date: 20241017
  Serious: Yes (Congenital Anomaly, Other)
  Sender: TEVA
  Company Number: US-TEVA-VS-3224724

PATIENT
  Sex: Male

DRUGS (8)
  1. AJOVY [Suspect]
     Active Substance: FREMANEZUMAB-VFRM
     Indication: Migraine prophylaxis
     Route: 064
     Dates: start: 20220125, end: 20220725
  2. BOTOX [Suspect]
     Active Substance: ONABOTULINUMTOXINA
     Indication: Migraine prophylaxis
     Dosage: DOSAGE: 200 U
     Route: 064
     Dates: start: 2019, end: 20220526
  3. TIZANIDINE [Suspect]
     Active Substance: TIZANIDINE
     Indication: Migraine
     Dosage: TIME INTERVAL: AS NECESSARY
     Route: 064
     Dates: start: 20220125, end: 20220725
  4. NARATRIPTAN [Suspect]
     Active Substance: NARATRIPTAN HYDROCHLORIDE
     Indication: Migraine
     Dosage: TIME INTERVAL: AS NECESSARY
     Route: 064
     Dates: start: 20220125, end: 20220725
  5. ZOLOFT [Concomitant]
     Active Substance: SERTRALINE HYDROCHLORIDE
     Indication: Depression
     Route: 064
     Dates: start: 202110
  6. PHENERGAN [Concomitant]
     Active Substance: PROMETHAZINE HYDROCHLORIDE
     Indication: Nausea
     Dosage: TIME INTERVAL: AS NECESSARY
     Route: 064
     Dates: start: 20220825
  7. PRO FE [Concomitant]
     Indication: Blood iron decreased
     Route: 064
     Dates: start: 20221212
  8. BUSPAR [Concomitant]
     Active Substance: BUSPIRONE HYDROCHLORIDE
     Indication: Anxiety
     Route: 064
     Dates: start: 20220523, end: 20220725

REACTIONS (4)
  - Ear canal stenosis [Unknown]
  - Congenital infection [Recovering/Resolving]
  - Premature baby [Unknown]
  - Foetal exposure during pregnancy [Unknown]

NARRATIVE: CASE EVENT DATE: 20220101
